FAERS Safety Report 21998772 (Version 3)
Quarter: 2023Q1

REPORT INFORMATION
  Report Type: Report from Study
  Country: BR (occurrence: BR)
  Receive Date: 20230216
  Receipt Date: 20230309
  Transmission Date: 20230418
  Serious: Yes (Death, Hospitalization, Other)
  Sender: FDA-Public Use
  Company Number: BR-002147023-NVSC2023BR026172

PATIENT
  Age: 35 Year
  Sex: Female

DRUGS (1)
  1. KISQALI [Suspect]
     Active Substance: RIBOCICLIB
     Indication: Product used for unknown indication
     Dosage: UNK
     Route: 065

REACTIONS (7)
  - Death [Fatal]
  - Metastases to liver [Unknown]
  - Hepatic lesion [Recovering/Resolving]
  - Abdominal pain [Recovered/Resolved]
  - Metastases to lung [Recovering/Resolving]
  - Disease progression [Not Recovered/Not Resolved]
  - Product distribution issue [Unknown]
